FAERS Safety Report 11704189 (Version 4)
Quarter: 2017Q4

REPORT INFORMATION
  Report Type: Report from Study
  Country: NL (occurrence: NL)
  Receive Date: 20151106
  Receipt Date: 20171206
  Transmission Date: 20180320
  Serious: Yes (Hospitalization, Other)
  Sender: FDA-Public Use
  Company Number: PHHY2015NL123824

PATIENT
  Age: 29 Year
  Sex: Female
  Weight: 50 kg

DRUGS (1)
  1. GILENYA [Suspect]
     Active Substance: FINGOLIMOD HYDROCHLORIDE
     Indication: MULTIPLE SCLEROSIS
     Dosage: 0.5 MG, QD
     Route: 048
     Dates: start: 20141113

REACTIONS (6)
  - Post procedural sepsis [Recovering/Resolving]
  - Muscle spasms [Recovering/Resolving]
  - Osteonecrosis [Unknown]
  - Joint dislocation [Unknown]
  - Pyrexia [Recovering/Resolving]
  - Hip fracture [Recovered/Resolved]

NARRATIVE: CASE EVENT DATE: 20150706
